FAERS Safety Report 4764973-X (Version None)
Quarter: 2005Q3

REPORT INFORMATION
  Report Type: 
  Country: None (occurrence: None)
  Receive Date: 20050909
  Receipt Date: 20050830
  Transmission Date: 20060218
  Serious: Yes (Other)
  Sender: FDA-Public Use
  Company Number: LB-ROCHE-415934

PATIENT
  Age: 46 Year
  Sex: Male
  Weight: 68 kg

DRUGS (4)
  1. PEGASYS [Suspect]
     Indication: HEPATITIS C
     Dosage: WEEKLY.
     Route: 058
     Dates: start: 20040902, end: 20050504
  2. RIBAVIRIN [Concomitant]
     Indication: HEPATITIS C
     Dosage: DAILY.
     Route: 048
     Dates: start: 20040902, end: 20050504
  3. LACTULOSE [Concomitant]
     Indication: ENCEPHALOPATHY
     Dates: start: 20040902
  4. HEPATITIS A VACCINE [Concomitant]
     Dosage: DRUG WAS ALSO ADMINISTERED ON 22 APRIL 2005.
     Dates: start: 20050318

REACTIONS (2)
  - ASCITES [None]
  - ASTHENIA [None]
